FAERS Safety Report 20017004 (Version 5)
Quarter: 2022Q2

REPORT INFORMATION
  Report Type: Report from Study
  Country: US (occurrence: US)
  Receive Date: 20211030
  Receipt Date: 20220502
  Transmission Date: 20220721
  Serious: No
  Sender: FDA-Public Use
  Company Number: US-NOVARTISTESTPH-NVSC2021US248275

PATIENT
  Sex: Male

DRUGS (2)
  1. COSENTYX [Suspect]
     Active Substance: SECUKINUMAB
     Indication: Psoriasis
     Dosage: 300 MG, QMO
     Route: 058
  2. PREDNISONE [Concomitant]
     Active Substance: PREDNISONE
     Indication: Infection
     Dosage: UNK
     Route: 065

REACTIONS (6)
  - Stress [Unknown]
  - Psoriasis [Unknown]
  - Ear infection [Unknown]
  - COVID-19 [Unknown]
  - Pharyngitis [Unknown]
  - Insomnia [Unknown]
